FAERS Safety Report 18955792 (Version 1)
Quarter: 2021Q1

REPORT INFORMATION
  Report Type: Spontaneous
  Country: US (occurrence: US)
  Receive Date: 20210301
  Receipt Date: 20210301
  Transmission Date: 20210420
  Serious: No
  Sender: FDA-Public Use
  Company Number: US-ABBVIE-20K-163-3650333-00

PATIENT
  Sex: Male

DRUGS (1)
  1. ANDROGEL [Suspect]
     Active Substance: TESTOSTERONE
     Indication: KLINEFELTER^S SYNDROME
     Route: 061

REACTIONS (1)
  - Blood testosterone decreased [Not Recovered/Not Resolved]
